FAERS Safety Report 9753746 (Version 1)
Quarter: 2013Q4

REPORT INFORMATION
  Report Type: Spontaneous
  Country: US (occurrence: US)
  Receive Date: 20131213
  Receipt Date: 20131213
  Transmission Date: 20140711
  Serious: No
  Sender: FDA-Public Use
  Company Number: US-GILEAD-2010-0026671

PATIENT
  Sex: Female
  Weight: 78.92 kg

DRUGS (11)
  1. LETAIRIS [Suspect]
     Indication: PULMONARY ARTERIAL HYPERTENSION
     Route: 048
     Dates: start: 20100106
  2. HYDROCHLOROTHIAZIDE [Concomitant]
  3. HYDROMET [Concomitant]
  4. ASTELIN [Concomitant]
  5. NASONEX [Concomitant]
  6. SYMBICORT [Concomitant]
  7. ADVIL [Concomitant]
  8. LIDODERM [Concomitant]
  9. PRILOSEC [Concomitant]
  10. CRESTOR [Concomitant]
  11. LEVOXYL [Concomitant]

REACTIONS (2)
  - Headache [Unknown]
  - Flushing [Unknown]
